FAERS Safety Report 18018251 (Version 1)
Quarter: 2020Q3

REPORT INFORMATION
  Report Type: Report from Study
  Country: None (occurrence: CA)
  Receive Date: 20200713
  Receipt Date: 20200713
  Transmission Date: 20201103
  Serious: Yes (Hospitalization, Other)
  Sender: FDA-Public Use
  Company Number: CA-ABBVIE-20K-028-3476217-00

PATIENT
  Age: 40 Year
  Sex: Male

DRUGS (1)
  1. HUMIRA [Suspect]
     Active Substance: ADALIMUMAB
     Indication: CROHN^S DISEASE
     Route: 058
     Dates: start: 20160430, end: 202003

REACTIONS (4)
  - Ileostomy [Unknown]
  - Procedural failure [Unknown]
  - Post procedural complication [Unknown]
  - Intestinal resection [Unknown]

NARRATIVE: CASE EVENT DATE: 202005
